FAERS Safety Report 19594628 (Version 1)
Quarter: 2021Q3

REPORT INFORMATION
  Report Type: Spontaneous
  Country: US (occurrence: US)
  Receive Date: 20210722
  Receipt Date: 20210722
  Transmission Date: 20211014
  Serious: No
  Sender: FDA-Public Use
  Company Number: US-BRISTOL-MYERS SQUIBB COMPANY-BMS-2021-071471

PATIENT
  Age: 23 Year
  Sex: Female

DRUGS (1)
  1. SPRYCEL [Suspect]
     Active Substance: DASATINIB
     Indication: CHRONIC MYELOID LEUKAEMIA (IN REMISSION)
     Dosage: 70 MG, 1 TABLET
     Route: 048

REACTIONS (4)
  - Migraine [Unknown]
  - Malaise [Unknown]
  - Diarrhoea [Unknown]
  - Night sweats [Unknown]
